FAERS Safety Report 7752560-0 (Version None)
Quarter: 2011Q3

REPORT INFORMATION
  Report Type: 
  Country: None (occurrence: None)
  Receive Date: 20110913
  Receipt Date: 20110902
  Transmission Date: 20111222
  Serious: Yes (Hospitalization)
  Sender: FDA-Public Use
  Company Number: OMPQ-NO-1109S-0972

PATIENT
  Age: 22 Year
  Sex: Female

DRUGS (1)
  1. OMNIPAQUE 70 [Suspect]
     Dosage: 80 ML, SINGLE DOSE, INTRAVENOUS
     Route: 042
     Dates: start: 20110825, end: 20110825

REACTIONS (2)
  - INFECTION [None]
  - BLOOD DISORDER [None]
